FAERS Safety Report 8978413 (Version 1)
Quarter: 2012Q4

REPORT INFORMATION
  Report Type: 
  Country: TW (occurrence: TW)
  Receive Date: 20121221
  Receipt Date: 20121221
  Transmission Date: 20130627
  Serious: Yes (Other)
  Sender: FDA-Public Use
  Company Number: TW-PFIZER INC-2012306770

PATIENT
  Age: 78 Year
  Sex: Male
  Weight: 77 kg

DRUGS (2)
  1. NORVASC [Suspect]
     Route: 048
  2. VIARTRIL S [Concomitant]

REACTIONS (4)
  - Renal failure [Unknown]
  - Renal function test abnormal [Unknown]
  - Pollakiuria [Unknown]
  - Nocturia [Unknown]
